FAERS Safety Report 25146720 (Version 1)
Quarter: 2025Q2

REPORT INFORMATION
  Report Type: Spontaneous
  Country: US (occurrence: US)
  Receive Date: 20250401
  Receipt Date: 20250401
  Transmission Date: 20250717
  Serious: No
  Sender: MYLAN
  Company Number: US-MYLANLABS-2025M1026606

PATIENT
  Sex: Female

DRUGS (1)
  1. TOLTERODINE TARTRATE [Suspect]
     Active Substance: TOLTERODINE TARTRATE
     Indication: Product used for unknown indication

REACTIONS (3)
  - Illness [Unknown]
  - Weight decreased [Unknown]
  - Drug ineffective [Unknown]
